FAERS Safety Report 21816707 (Version 3)
Quarter: 2023Q1

REPORT INFORMATION
  Report Type: Spontaneous
  Country: DE (occurrence: DE)
  Receive Date: 20230104
  Receipt Date: 20230228
  Transmission Date: 20230417
  Serious: Yes (Other)
  Sender: FDA-Public Use
  Company Number: DE-TORRENT-00023926

PATIENT
  Age: 16 Year
  Sex: Male

DRUGS (6)
  1. VORICONAZOLE [Interacting]
     Active Substance: VORICONAZOLE
     Indication: Fusarium infection
     Dosage: 6 MG/KG, 2X/DAY, LOADING DOSE
     Route: 042
  2. VORICONAZOLE [Interacting]
     Active Substance: VORICONAZOLE
     Dosage: 4 MG/KG, 2X/DAY, MAINTENANCE DOSE
     Route: 042
  3. VORICONAZOLE [Interacting]
     Active Substance: VORICONAZOLE
     Dosage: 12 MG/KG
     Route: 042
  4. TACROLIMUS [Interacting]
     Active Substance: TACROLIMUS
     Indication: Prophylaxis against graft versus host disease
     Dosage: UNK
  5. AMPHOTERICIN B [Concomitant]
     Active Substance: AMPHOTERICIN B
     Indication: Fusarium infection
     Dosage: 3 MG/KG, 1X/DAY, START DAY +31
  6. AMPHOTERICIN B [Concomitant]
     Active Substance: AMPHOTERICIN B
     Dosage: 5 MG/KG, 1X/DAY, STOP DATE DAY +34

REACTIONS (5)
  - Drug interaction [Unknown]
  - Acute kidney injury [Unknown]
  - Capillary leak syndrome [Unknown]
  - Pulmonary oedema [Unknown]
  - Oedema peripheral [Unknown]
